FAERS Safety Report 8208011-5 (Version None)
Quarter: 2012Q1

REPORT INFORMATION
  Report Type: 
  Country: None (occurrence: None)
  Receive Date: 20120314
  Receipt Date: 20120305
  Transmission Date: 20120608
  Serious: Yes (Other)
  Sender: FDA-Public Use
  Company Number: JP-TEVA-327049ISR

PATIENT
  Age: 49 Year
  Sex: Female

DRUGS (1)
  1. MEXILETINE HYDROCHLORIDE [Suspect]
     Indication: NEURALGIA
     Route: 065

REACTIONS (1)
  - DRUG RASH WITH EOSINOPHILIA AND SYSTEMIC SYMPTOMS [None]
